FAERS Safety Report 23282356 (Version 1)
Quarter: 2023Q4

REPORT INFORMATION
  Report Type: Other
  Country: CA (occurrence: CA)
  Receive Date: 20231211
  Receipt Date: 20231211
  Transmission Date: 20240110
  Serious: Yes (Hospitalization, Other)
  Sender: FDA-Public Use
  Company Number: CA-PFIZER INC-202300434650

PATIENT

DRUGS (2)
  1. RITUXIMAB [Suspect]
     Active Substance: RITUXIMAB
     Dosage: UNK
     Route: 065
  2. APREMILAST [Suspect]
     Active Substance: APREMILAST
     Dosage: UNK
     Route: 065

REACTIONS (9)
  - COVID-19 [Unknown]
  - Crohn^s disease [Unknown]
  - Multiple sclerosis [Unknown]
  - Myopathy [Unknown]
  - Psoriatic arthropathy [Unknown]
  - Rheumatoid arthritis [Unknown]
  - Spondyloarthropathy [Unknown]
  - Systemic lupus erythematosus [Unknown]
  - Vasculitis [Unknown]
